FAERS Safety Report 25614474 (Version 1)
Quarter: 2025Q3

REPORT INFORMATION
  Report Type: Spontaneous
  Country: CN (occurrence: CN)
  Receive Date: 20250729
  Receipt Date: 20250729
  Transmission Date: 20251020
  Serious: Yes (Other)
  Sender: ACCORD
  Company Number: None

PATIENT
  Age: 55 Year
  Sex: Female
  Weight: 69 kg

DRUGS (4)
  1. TRASTUZUMAB [Suspect]
     Active Substance: TRASTUZUMAB
     Indication: Invasive breast carcinoma
     Dosage: STRENGTH: 150 MILLIGRAM?550 MILLIGRAM, QD
     Route: 042
     Dates: start: 20250418, end: 20250418
  2. PACLITAXEL [Suspect]
     Active Substance: PACLITAXEL
     Indication: Invasive breast carcinoma
     Dosage: 230 MILLIGRAM, QD
     Route: 042
     Dates: start: 20250418, end: 20250418
  3. PARAPLATIN [Suspect]
     Active Substance: CARBOPLATIN
     Indication: Invasive breast carcinoma
     Dosage: 600 MILLIGRAM, QD
     Route: 042
     Dates: start: 20250418, end: 20250418
  4. PERJETA [Suspect]
     Active Substance: PERTUZUMAB
     Indication: Invasive breast carcinoma
     Dosage: 840 MILLIGRAM, QD
     Route: 042
     Dates: start: 20250418, end: 20250418

REACTIONS (1)
  - Myelosuppression [Recovering/Resolving]

NARRATIVE: CASE EVENT DATE: 20250424
